FAERS Safety Report 8825722 (Version 2)
Quarter: 2012Q4

REPORT INFORMATION
  Report Type: 
  Country: US (occurrence: US)
  Receive Date: 20121004
  Receipt Date: 20121031
  Transmission Date: 20130627
  Serious: No
  Sender: FDA-Public Use
  Company Number: US-009507513-1209USA010992

PATIENT
  Age: 80 Year
  Sex: Female

DRUGS (2)
  1. ZETIA [Suspect]
     Indication: BLOOD CHOLESTEROL
     Dosage: 10 mg, qd
     Route: 048
     Dates: start: 20120911
  2. ATENOLOL [Concomitant]

REACTIONS (2)
  - Vision blurred [Not Recovered/Not Resolved]
  - Gastrooesophageal reflux disease [Unknown]
